FAERS Safety Report 11077841 (Version 2)
Quarter: 2015Q2

REPORT INFORMATION
  Report Type: Spontaneous
  Country: US (occurrence: US)
  Receive Date: 20150430
  Receipt Date: 20150511
  Transmission Date: 20150821
  Serious: Yes (Hospitalization)
  Sender: FDA-Public Use
  Company Number: US-BEH-2015050548

PATIENT
  Age: 31 Year
  Sex: Female
  Weight: 58 kg

DRUGS (13)
  1. SODIUM CHLORIDE. [Concomitant]
     Active Substance: SODIUM CHLORIDE
     Dosage: 1-10 ML
     Route: 042
  2. DIPHENHYDRAMINE [Concomitant]
     Active Substance: DIPHENHYDRAMINE
     Indication: ANAPHYLACTIC REACTION
     Route: 048
  3. STERILE WATER [Concomitant]
     Active Substance: WATER
     Dosage: 5 ML RECONSTITUTED
     Route: 042
  4. BERINERT [Suspect]
     Active Substance: HUMAN C1-ESTERASE INHIBITOR
     Indication: HEREDITARY ANGIOEDEMA
     Dosage: 500 UNIT VIAL
     Route: 042
  5. HEPARIN [Concomitant]
     Active Substance: HEPARIN SODIUM
     Dosage: 1000 UNITS/ML
     Route: 042
  6. KALBITOR [Concomitant]
     Active Substance: ECALLANTIDE
     Route: 058
  7. FLUTICASONE [Concomitant]
     Active Substance: FLUTICASONE\FLUTICASONE PROPIONATE
     Dosage: 50 MCG, 2 SPRAYS DAILY
     Route: 045
  8. LORATADINE. [Concomitant]
     Active Substance: LORATADINE
     Dosage: 1 TABLET
     Route: 048
  9. ZOLOFT [Concomitant]
     Active Substance: SERTRALINE HYDROCHLORIDE
     Route: 048
  10. EPIPEN [Concomitant]
     Active Substance: EPINEPHRINE
     Indication: ANAPHYLACTIC REACTION
     Route: 030
  11. CINRYZE [Concomitant]
     Active Substance: HUMAN C1-ESTERASE INHIBITOR
     Route: 042
  12. TOPAMAX [Concomitant]
     Active Substance: TOPIRAMATE
     Route: 048
  13. ALAWAY [Concomitant]
     Active Substance: KETOTIFEN FUMARATE

REACTIONS (3)
  - Respiratory tract oedema [Recovered/Resolved]
  - Swelling face [Recovered/Resolved]
  - Hereditary angioedema [Recovered/Resolved]

NARRATIVE: CASE EVENT DATE: 20150409
